FAERS Safety Report 25360664 (Version 3)
Quarter: 2025Q4

REPORT INFORMATION
  Report Type: Report from Study
  Country: CA (occurrence: CA)
  Receive Date: 20250527
  Receipt Date: 20251204
  Transmission Date: 20260117
  Serious: Yes (Hospitalization)
  Sender: BOEHRINGER INGELHEIM
  Company Number: CA-BoehringerIngelheim-2021-BI-120868

PATIENT
  Age: 80 Year
  Sex: Female

DRUGS (4)
  1. OFEV [Suspect]
     Active Substance: NINTEDANIB
     Indication: Idiopathic pulmonary fibrosis
  2. OFEV [Suspect]
     Active Substance: NINTEDANIB
     Dates: start: 20200804, end: 20240224
  3. OFEV [Suspect]
     Active Substance: NINTEDANIB
     Dates: start: 20200731, end: 202504
  4. OFEV [Suspect]
     Active Substance: NINTEDANIB
     Dosage: 150MG IN AM AND 100MG IN PM

REACTIONS (15)
  - Diarrhoea [Recovered/Resolved]
  - Electrolyte depletion [Recovering/Resolving]
  - Diarrhoea [Recovering/Resolving]
  - Asthenia [Recovering/Resolving]
  - Gait inability [Unknown]
  - Constipation [Not Recovered/Not Resolved]
  - Shoulder operation [Recovered/Resolved]
  - Productive cough [Not Recovered/Not Resolved]
  - Constipation [Recovered/Resolved]
  - Weight decreased [Not Recovered/Not Resolved]
  - Pruritus [Not Recovered/Not Resolved]
  - Arthralgia [Not Recovered/Not Resolved]
  - Rotator cuff syndrome [Not Recovered/Not Resolved]
  - Dysphagia [Not Recovered/Not Resolved]
  - Pain in extremity [Not Recovered/Not Resolved]

NARRATIVE: CASE EVENT DATE: 20220315
